FAERS Safety Report 5037992-6 (Version None)
Quarter: 2006Q2

REPORT INFORMATION
  Report Type: 
  Country: None (occurrence: None)
  Receive Date: 20060616
  Receipt Date: 20051017
  Transmission Date: 20061013
  Serious: Yes (Life-Threatening)
  Sender: FDA-Public Use
  Company Number: NUBN20050020

PATIENT
  Age: 43 Year
  Sex: Male
  Weight: 63.9572 kg

DRUGS (10)
  1. NUBAIN [Suspect]
     Indication: MIGRAINE
     Dosage: 20 MG ONCE IM
     Route: 030
     Dates: start: 20050818, end: 20050818
  2. FENTANYL TRANSDERMAL SYSTEM [Suspect]
     Indication: BACK PAIN
     Dosage: 100 MCG/ DAILY TRANSD
     Route: 062
     Dates: start: 20050501
  3. PHENERGAN HCL [Concomitant]
  4. LOSARTAN POTASSIUM [Concomitant]
  5. HYDROCHLOROTHIAZIDE/BISOPROLOL [Concomitant]
  6. CYCLOBENZAPRINE HCL [Concomitant]
  7. LIDOCAINE [Concomitant]
  8. PARACETAMOL/OXYCODONE HYDROCHLORIDE [Concomitant]
  9. BACLOFEN [Concomitant]
  10. PARACETAMOL/HYDROCODONE BITARTRATE [Concomitant]

REACTIONS (5)
  - CONVULSION [None]
  - DRUG INTERACTION [None]
  - DRUG WITHDRAWAL SYNDROME [None]
  - INCONTINENCE [None]
  - RESPIRATORY DISTRESS [None]
